FAERS Safety Report 24278112 (Version 1)
Quarter: 2024Q3

REPORT INFORMATION
  Report Type: Spontaneous
  Country: JP (occurrence: JP)
  Receive Date: 20240903
  Receipt Date: 20240903
  Transmission Date: 20241016
  Serious: Yes (Other)
  Sender: ELI LILLY AND CO
  Company Number: JP-Merck Healthcare KGaA-2024046696

PATIENT
  Age: 54 Year
  Sex: Male

DRUGS (3)
  1. ERBITUX [Suspect]
     Active Substance: CETUXIMAB
     Indication: Colon cancer metastatic
     Dosage: UNK
     Route: 041
  2. FLUOROURACIL [Concomitant]
     Active Substance: FLUOROURACIL
     Indication: Colon cancer metastatic
     Dosage: 5-FU (FLUOROURACIL) BOLUS; BETWEEN C1 AND 10. 5-FU INFUSION; BETWEEN C1 AND 12
     Route: 042
  3. OXALIPLATIN [Concomitant]
     Active Substance: OXALIPLATIN
     Indication: Colon cancer metastatic
     Dosage: UNK

REACTIONS (3)
  - Neuropathy peripheral [Unknown]
  - Neutrophil count decreased [Unknown]
  - Hypomagnesaemia [Unknown]
